FAERS Safety Report 5748213-0 (Version None)
Quarter: 2008Q2

REPORT INFORMATION
  Report Type: 
  Country: None (occurrence: None)
  Receive Date: 20080523
  Receipt Date: 20080516
  Transmission Date: 20081010
  Serious: Yes (Life-Threatening, Hospitalization, Other)
  Sender: FDA-Public Use
  Company Number: HK-ABBOTT-08P-075-0452066-00

PATIENT
  Age: 77 Year
  Sex: Female

DRUGS (1)
  1. WARFARIN SODIUM [Suspect]
     Indication: PROPHYLAXIS
     Dosage: NOT REPORTED

REACTIONS (1)
  - PERITONEAL HAEMORRHAGE [None]
